FAERS Safety Report 8142558-5 (Version None)
Quarter: 2012Q1

REPORT INFORMATION
  Report Type: 
  Country: None (occurrence: None)
  Receive Date: 20120216
  Receipt Date: 20120214
  Transmission Date: 20120608
  Serious: Yes (Death, Hospitalization)
  Sender: FDA-Public Use
  Company Number: US-BRACCO-007427

PATIENT
  Sex: Female
  Weight: 88 kg

DRUGS (6)
  1. ISOVUE-370 [Suspect]
     Indication: WEIGHT DECREASED
     Route: 042
     Dates: start: 20120113, end: 20120113
  2. ANTIHYPERTENSIVES [Concomitant]
  3. ISOVUE-370 [Suspect]
     Indication: NAUSEA
     Route: 042
     Dates: start: 20120113, end: 20120113
  4. ISOVUE-370 [Suspect]
     Indication: VOMITING
     Route: 042
     Dates: start: 20120113, end: 20120113
  5. ISOVUE-370 [Suspect]
     Indication: COMPUTERISED TOMOGRAM
     Route: 042
     Dates: start: 20120113, end: 20120113
  6. METFORMIN HCL [Concomitant]

REACTIONS (3)
  - PNEUMONIA [None]
  - HYPERTENSION [None]
  - RESPIRATORY DISTRESS [None]
